FAERS Safety Report 14698245 (Version 2)
Quarter: 2018Q2

REPORT INFORMATION
  Report Type: Spontaneous
  Country: DE (occurrence: DE)
  Receive Date: 20180330
  Receipt Date: 20180405
  Transmission Date: 20180711
  Serious: Yes (Hospitalization)
  Sender: FDA-Public Use
  Company Number: DE-ASTRAZENECA-2018SE30038

PATIENT
  Age: 25781 Day
  Sex: Female
  Weight: 82 kg

DRUGS (11)
  1. XIGDUO XR [Suspect]
     Active Substance: DAPAGLIFLOZIN PROPANEDIOL\METFORMIN HYDROCHLORIDE
     Indication: TYPE 2 DIABETES MELLITUS
     Dosage: 5 MG/ 850 MG ONCE DAILY
     Route: 048
     Dates: start: 20171108
  2. XIGDUO XR [Suspect]
     Active Substance: DAPAGLIFLOZIN PROPANEDIOL\METFORMIN HYDROCHLORIDE
     Indication: TYPE 2 DIABETES MELLITUS
     Dosage: 5 MG/ 850 MG TWO TABLETS DAILY
     Route: 048
     Dates: start: 20171214
  3. ENALAPRIL [Concomitant]
     Active Substance: ENALAPRIL
  4. CALCIUM EFF [Concomitant]
     Dosage: EVERY MORNING
  5. TOUJEO [Concomitant]
     Active Substance: INSULIN GLARGINE
     Route: 058
  6. BICANORM [Concomitant]
     Active Substance: SODIUM BICARBONATE
     Dosage: THREE TIMES A DAY
  7. TORASEMIDE [Concomitant]
     Active Substance: TORSEMIDE
  8. L-THYROXIN [Concomitant]
     Active Substance: LEVOTHYROXINE SODIUM
  9. SIMVASTATIN. [Concomitant]
     Active Substance: SIMVASTATIN
  10. CANDESARTAN. [Concomitant]
     Active Substance: CANDESARTAN
     Dosage: 16 MG, 0.5-0-0-0
  11. INSULIN [Concomitant]
     Active Substance: INSULIN NOS
     Route: 058

REACTIONS (14)
  - Weight increased [Recovering/Resolving]
  - Dyspnoea exertional [Unknown]
  - Thirst [Unknown]
  - Renal tubular necrosis [Unknown]
  - Fatigue [Unknown]
  - Oedema peripheral [Unknown]
  - Emphysema [Unknown]
  - Nephrotic syndrome [Unknown]
  - Eye swelling [Unknown]
  - Escherichia urinary tract infection [Unknown]
  - Acute kidney injury [Unknown]
  - Swelling face [Unknown]
  - Polyuria [Unknown]
  - Asthenia [Unknown]

NARRATIVE: CASE EVENT DATE: 20171108
